FAERS Safety Report 10151421 (Version 3)
Quarter: 2014Q2

REPORT INFORMATION
  Report Type: Report from Study
  Country: US (occurrence: US)
  Receive Date: 20140502
  Receipt Date: 20140620
  Transmission Date: 20141212
  Serious: Yes (Other)
  Sender: FDA-Public Use
  Company Number: PHHY2013US103195

PATIENT
  Age: 44 Year
  Sex: Female
  Weight: 48 kg

DRUGS (5)
  1. GILENYA [Suspect]
     Indication: MULTIPLE SCLEROSIS
     Dosage: 0.5 MG, QD
     Route: 048
     Dates: start: 20120101
  2. NEXIUM//ESOMEPRAZOLE MAGNESIUM [Concomitant]
     Dosage: 1 DF, QD
     Route: 048
  3. TYLENOL [Concomitant]
  4. BACLOFEN [Concomitant]
     Dosage: 1 DF, TID
     Route: 048
  5. COUMADINE [Concomitant]
     Dosage: 1 DF, QD
     Route: 048

REACTIONS (8)
  - Diplopia [Not Recovered/Not Resolved]
  - Vision blurred [Not Recovered/Not Resolved]
  - Visual impairment [Not Recovered/Not Resolved]
  - Nausea [Not Recovered/Not Resolved]
  - Alopecia [Not Recovered/Not Resolved]
  - Weight decreased [Not Recovered/Not Resolved]
  - Headache [Not Recovered/Not Resolved]
  - Dizziness [Not Recovered/Not Resolved]
